FAERS Safety Report 6376764-7 (Version None)
Quarter: 2009Q3

REPORT INFORMATION
  Report Type: 
  Country: None (occurrence: None)
  Receive Date: 20090924
  Receipt Date: 20090924
  Transmission Date: 20100115
  Serious: Yes (Other)
  Sender: FDA-Public Use
  Company Number: None

PATIENT
  Sex: Female
  Weight: 63.5036 kg

DRUGS (2)
  1. ADDERALL XR 20 [Suspect]
     Indication: NARCOLEPSY
     Dosage: 20MG 2 @ AM MOUTH
     Route: 048
     Dates: start: 20000601, end: 20070601
  2. AMPHETAMINE (GENERIC FOR ADDERALL) [Suspect]
     Dosage: 10MG TABLETS 3 @AM, 2@NOON MOUTH
     Route: 048

REACTIONS (1)
  - DEPRESSION [None]
